FAERS Safety Report 13490803 (Version 1)
Quarter: 2017Q2

REPORT INFORMATION
  Report Type: Spontaneous
  Country: US (occurrence: US)
  Receive Date: 20170427
  Receipt Date: 20170427
  Transmission Date: 20170830
  Serious: Yes (Hospitalization, Other)
  Sender: FDA-Public Use
  Company Number: US-ASTRAZENECA-2017SE43260

PATIENT
  Age: 64 Year
  Sex: Male
  Weight: 65.8 kg

DRUGS (11)
  1. PULMICORT RESPULES [Suspect]
     Active Substance: BUDESONIDE
     Route: 055
  2. MORPHINE [Concomitant]
     Active Substance: MORPHINE
     Route: 048
     Dates: start: 201703
  3. ALBUTEROL. [Concomitant]
     Active Substance: ALBUTEROL
     Dosage: FOUR TIMES A DAY
     Route: 055
     Dates: start: 2006
  4. PREDNISONE. [Concomitant]
     Active Substance: PREDNISONE
     Indication: CHRONIC OBSTRUCTIVE PULMONARY DISEASE
     Dosage: OFF AND ON OVER MANY YEARS
     Route: 048
  5. COLACE [Concomitant]
     Active Substance: DOCUSATE SODIUM
     Indication: ADJUVANT THERAPY
     Route: 048
     Dates: start: 201703
  6. DALIRESP [Suspect]
     Active Substance: ROFLUMILAST
     Indication: CHRONIC OBSTRUCTIVE PULMONARY DISEASE
     Route: 048
  7. TUDORZA PRESSAIR [Suspect]
     Active Substance: ACLIDINIUM BROMIDE
     Indication: CHRONIC OBSTRUCTIVE PULMONARY DISEASE
     Route: 055
  8. PROFORMIST [Concomitant]
     Indication: CHRONIC OBSTRUCTIVE PULMONARY DISEASE
     Dosage: TWO TIMES A DAY
     Route: 055
  9. PREDNISONE. [Concomitant]
     Active Substance: PREDNISONE
     Indication: CHRONIC OBSTRUCTIVE PULMONARY DISEASE
     Route: 048
  10. OXYGEN. [Concomitant]
     Active Substance: OXYGEN
     Indication: CHRONIC OBSTRUCTIVE PULMONARY DISEASE
     Dosage: 4.0L CONTINUOUSLY
     Route: 045
     Dates: start: 2006
  11. ZYRTEC LIQUID [Concomitant]
     Route: 048

REACTIONS (10)
  - Chronic obstructive pulmonary disease [Not Recovered/Not Resolved]
  - Diarrhoea [Unknown]
  - Dyspnoea [Not Recovered/Not Resolved]
  - Umbilical hernia [Unknown]
  - Diverticulum oesophageal [Unknown]
  - Product use issue [Unknown]
  - Malaise [Not Recovered/Not Resolved]
  - Weight decreased [Unknown]
  - Lung neoplasm malignant [Unknown]
  - Off label use [Unknown]

NARRATIVE: CASE EVENT DATE: 2014
